FAERS Safety Report 9764302 (Version 4)
Quarter: 2014Q1

REPORT INFORMATION
  Report Type: Report from Study
  Country: CA (occurrence: CA)
  Receive Date: 20131217
  Receipt Date: 20140205
  Transmission Date: 20141002
  Serious: Yes (Other)
  Sender: FDA-Public Use
  Company Number: CA-ROCHE-1320099

PATIENT
  Sex: Male
  Weight: 103.4 kg

DRUGS (9)
  1. RITUXAN [Suspect]
     Indication: CHRONIC LYMPHOCYTIC LEUKAEMIA
     Route: 042
     Dates: start: 20100512
  2. RITUXAN [Suspect]
     Indication: AUTOIMMUNE HAEMOLYTIC ANAEMIA
     Route: 042
     Dates: start: 20120710
  3. CYCLOPHOSPHAMIDE [Suspect]
     Indication: PRODUCT USED FOR UNKNOWN INDICATION
     Route: 065
  4. FLUDARABINE [Suspect]
     Indication: PRODUCT USED FOR UNKNOWN INDICATION
     Route: 065
  5. IVIG [Suspect]
     Indication: PRODUCT USED FOR UNKNOWN INDICATION
     Route: 065
     Dates: start: 201206
  6. PREDNISONE [Concomitant]
  7. FOLIC ACID [Concomitant]
  8. PARIET [Concomitant]
  9. ZANTAC [Concomitant]
     Dosage: AS REQUIRED
     Route: 065

REACTIONS (14)
  - Autoimmune haemolytic anaemia [Unknown]
  - Sepsis [Unknown]
  - Lymphadenopathy [Not Recovered/Not Resolved]
  - Rib fracture [Recovering/Resolving]
  - Pleural effusion [Unknown]
  - Pneumonia [Recovered/Resolved]
  - Pneumothorax [Unknown]
  - White blood cell count increased [Unknown]
  - Hypersensitivity [Unknown]
  - Drug ineffective [Unknown]
  - Herpes zoster [Recovered/Resolved]
  - Varicella [Recovered/Resolved]
  - Nasopharyngitis [Recovered/Resolved]
  - Off label use [Unknown]
